FAERS Safety Report 24335773 (Version 2)
Quarter: 2024Q4

REPORT INFORMATION
  Report Type: Spontaneous
  Country: JP (occurrence: JP)
  Receive Date: 20240919
  Receipt Date: 20241004
  Transmission Date: 20250114
  Serious: Yes (Hospitalization)
  Sender: AMGEN
  Company Number: JP-KYOWAKIRIN-2024KK021086

PATIENT
  Age: 9 Decade
  Sex: Male

DRUGS (4)
  1. PEGFILGRASTIM [Suspect]
     Active Substance: PEGFILGRASTIM
     Indication: Febrile neutropenia
     Dosage: 3.6 MG
     Route: 058
     Dates: start: 20240817, end: 20240817
  2. FILGRASTIM [Concomitant]
     Active Substance: FILGRASTIM
     Indication: Product used for unknown indication
     Dosage: 75 UG PER DAY
     Route: 065
     Dates: start: 20240827, end: 20240828
  3. JEVTANA [Concomitant]
     Active Substance: CABAZITAXEL
     Indication: Product used for unknown indication
     Dosage: 36 MG PER DAY
     Route: 065
     Dates: start: 20240816, end: 20240816
  4. PREDONINE [Concomitant]
     Active Substance: PREDNISOLONE
     Indication: Product used for unknown indication
     Dosage: 10 MG PER DAY
     Route: 065
     Dates: start: 20240816, end: 20240816

REACTIONS (4)
  - Neutrophil count decreased [Unknown]
  - Colony stimulating factor therapy [Unknown]
  - Therapeutic procedure [Unknown]
  - Off label use [Unknown]

NARRATIVE: CASE EVENT DATE: 20240817
